FAERS Safety Report 24975143 (Version 2)
Quarter: 2025Q1

REPORT INFORMATION
  Report Type: Spontaneous
  Country: US (occurrence: US)
  Receive Date: 20250217
  Receipt Date: 20250326
  Transmission Date: 20250408
  Serious: No
  Sender: Kenvue
  Company Number: US-KENVUE-20250111522

PATIENT
  Sex: Female

DRUGS (1)
  1. MOTRIN INFANTS [Suspect]
     Active Substance: IBUPROFEN
     Indication: Product used for unknown indication
     Route: 048

REACTIONS (5)
  - Product administered to patient of inappropriate age [Unknown]
  - Poor quality product administered [Unknown]
  - Product contamination physical [Unknown]
  - Product physical consistency issue [Unknown]
  - Product colour issue [Unknown]
